FAERS Safety Report 8391669-8 (Version None)
Quarter: 2012Q1

REPORT INFORMATION
  Report Type: 
  Country: None (occurrence: None)
  Receive Date: 20120323
  Receipt Date: 20110307
  Transmission Date: 20120608
  Serious: Yes (Other)
  Sender: FDA-Public Use
  Company Number: 163-21880-11031078

PATIENT
  Sex: Male

DRUGS (3)
  1. REVLIMID [Suspect]
     Indication: MULTIPLE MYELOMA
     Dosage: 25 MG, DAYS 1-14 EVERY 21 DAYS, PO, 25 MG, DAILY X 21 DAYS, PO, 25 MG, DAILY X 21 DAYS, PO
     Route: 048
     Dates: start: 20101001
  2. REVLIMID [Suspect]
     Indication: MULTIPLE MYELOMA
     Dosage: 25 MG, DAYS 1-14 EVERY 21 DAYS, PO, 25 MG, DAILY X 21 DAYS, PO, 25 MG, DAILY X 21 DAYS, PO
     Route: 048
     Dates: start: 20100520
  3. REVLIMID [Suspect]
     Indication: MULTIPLE MYELOMA
     Dosage: 25 MG, DAYS 1-14 EVERY 21 DAYS, PO, 25 MG, DAILY X 21 DAYS, PO, 25 MG, DAILY X 21 DAYS, PO
     Route: 048
     Dates: start: 20101201

REACTIONS (3)
  - PNEUMONIA [None]
  - BRONCHITIS [None]
  - DYSPNOEA [None]
